FAERS Safety Report 6278785-1 (Version None)
Quarter: 2009Q3

REPORT INFORMATION
  Report Type: 
  Country: None (occurrence: None)
  Receive Date: 20090723
  Receipt Date: 20071206
  Transmission Date: 20100115
  Serious: Yes (Other)
  Sender: FDA-Public Use
  Company Number: US-ASTRAZENECA-2007UW21495

PATIENT
  Age: 17042 Day
  Sex: Male
  Weight: 105.2 kg

DRUGS (15)
  1. SEROQUEL [Suspect]
     Indication: SCHIZOPHRENIA, PARANOID TYPE
     Dosage: 100 MG TO 1200 MG
     Route: 048
     Dates: start: 19981201
  2. SEROQUEL [Suspect]
     Indication: PSYCHOTIC DISORDER
     Dosage: 100 MG TO 1200 MG
     Route: 048
     Dates: start: 19981201
  3. SEROQUEL [Suspect]
     Dosage: 25-1400 MG
     Route: 048
     Dates: start: 19990805
  4. SEROQUEL [Suspect]
     Dosage: 25-1400 MG
     Route: 048
     Dates: start: 19990805
  5. LORAZEPAM [Concomitant]
     Indication: ANXIETY
     Dosage: 0.5-1 MG
     Route: 048
     Dates: start: 20040404
  6. CITALOPRAM HYDROBROMIDE [Concomitant]
     Indication: DEPRESSION
     Dosage: 20-40 MG
     Route: 048
  7. CITALOPRAM HYDROBROMIDE [Concomitant]
     Indication: ANXIETY
     Dosage: 20-40 MG
     Route: 048
  8. ATENOLOL [Concomitant]
     Indication: BLOOD PRESSURE
     Dosage: 25-50 MG
     Route: 048
  9. CYCLOBENZAPRINE [Concomitant]
     Indication: MUSCLE SPASMS
     Route: 048
  10. GEMFIBROZIL [Concomitant]
     Indication: BLOOD TRIGLYCERIDES
     Route: 048
  11. GLYBURIDE [Concomitant]
     Indication: BLOOD GLUCOSE ABNORMAL
     Dosage: 2.5-10 MG
     Route: 048
  12. METFORMIN HYDROCHLORIDE [Concomitant]
  13. ROSIGLITAZONE [Concomitant]
     Indication: BLOOD GLUCOSE ABNORMAL
     Dosage: 4-8 MG
     Route: 048
  14. SIMVASTATIN [Concomitant]
     Indication: BLOOD CHOLESTEROL
     Dosage: 40-80 MG
     Route: 048
  15. PREDNISONE TAB [Concomitant]
     Indication: INFLAMMATION
     Route: 048

REACTIONS (3)
  - DIABETES MELLITUS [None]
  - HYPERGLYCAEMIA [None]
  - NEUROPATHY PERIPHERAL [None]
